FAERS Safety Report 18305222 (Version 2)
Quarter: 2020Q4

REPORT INFORMATION
  Report Type: Spontaneous
  Country: US (occurrence: US)
  Receive Date: 20200924
  Receipt Date: 20201016
  Transmission Date: 20210113
  Serious: Yes (Hospitalization)
  Sender: FDA-Public Use
  Company Number: US-BIOGEN-2020BI00926081

PATIENT
  Sex: Female

DRUGS (1)
  1. TECFIDERA [Suspect]
     Active Substance: DIMETHYL FUMARATE
     Indication: MULTIPLE SCLEROSIS
     Route: 065
     Dates: start: 20180222

REACTIONS (6)
  - Speech disorder [Recovered/Resolved]
  - Impaired self-care [Unknown]
  - Blindness [Recovered/Resolved]
  - Paralysis [Recovered/Resolved]
  - Central nervous system lesion [Unknown]
  - Gait inability [Recovered/Resolved]
